FAERS Safety Report 18306124 (Version 1)
Quarter: 2020Q3

REPORT INFORMATION
  Report Type: Other
  Country: US (occurrence: US)
  Receive Date: 20200924
  Receipt Date: 20200924
  Transmission Date: 20201103
  Serious: Yes (Other)
  Sender: FDA-Public Use
  Company Number: US-ROCHE-2682708

PATIENT
  Sex: Female

DRUGS (1)
  1. XELODA [Suspect]
     Active Substance: CAPECITABINE
     Indication: BREAST CANCER FEMALE
     Dosage: TAKE 2 TABLET(S) BY MOUTH TWICE A DAY 1 WEEK(S) ON, 1 WEEK(S) OFF AND REPEAT
     Route: 048

REACTIONS (1)
  - Contrast media reaction [Unknown]
